FAERS Safety Report 5870210-5 (Version None)
Quarter: 2008Q3

REPORT INFORMATION
  Report Type: 
  Country: None (occurrence: None)
  Receive Date: 20080902
  Receipt Date: 20080820
  Transmission Date: 20090109
  Serious: Yes (Other)
  Sender: FDA-Public Use
  Company Number: RENA-1000168

PATIENT
  Age: 41 Year
  Sex: Female

DRUGS (1)
  1. RENAGEL [Suspect]
     Indication: HYPERPHOSPHATAEMIA
     Dosage: 2.4 G, TID, ORAL
     Route: 048
     Dates: start: 20071022

REACTIONS (3)
  - FOREIGN BODY TRAUMA [None]
  - OESOPHAGEAL ULCER [None]
  - ORAL ADMINISTRATION COMPLICATION [None]
